FAERS Safety Report 4863380-9 (Version None)
Quarter: 2005Q4

REPORT INFORMATION
  Report Type: 
  Country: None (occurrence: None)
  Receive Date: 20051222
  Receipt Date: 20041104
  Transmission Date: 20060501
  Serious: No
  Sender: FDA-Public Use
  Company Number: US-GLAXOSMITHKLINE-A0533121A

PATIENT
  Sex: Male

DRUGS (1)
  1. FLONASE [Suspect]
     Dosage: 2SPR TWICE PER DAY
     Route: 045

REACTIONS (4)
  - ASTHENIA [None]
  - DIZZINESS [None]
  - HEADACHE [None]
  - NAUSEA [None]
